FAERS Safety Report 7490167-3 (Version None)
Quarter: 2011Q2

REPORT INFORMATION
  Report Type: 
  Country: None (occurrence: None)
  Receive Date: 20110519
  Receipt Date: 20110422
  Transmission Date: 20111010
  Serious: Yes (Other)
  Sender: FDA-Public Use
  Company Number: US-BAYER-201040136NA

PATIENT
  Age: 22 Year
  Sex: Female
  Weight: 61.22 kg

DRUGS (13)
  1. LEVSIN [Concomitant]
  2. ADVIL LIQUI-GELS [Concomitant]
     Dosage: UNK UNK, PRN
  3. BENEFIBER [Concomitant]
  4. MULTI-VITAMIN [Concomitant]
     Dosage: UNK UNK, QD
  5. YAZ [Suspect]
     Indication: MENSTRUAL CYCLE MANAGEMENT
     Route: 048
     Dates: start: 20060401, end: 20070501
  6. MOTRIN [Concomitant]
     Dosage: UNK UNK, PRN
  7. BIAXIN [Concomitant]
     Dosage: UNK UNK, BID
  8. MILK OF MAGNESIA TAB [Concomitant]
  9. AMOXICILLIN [Concomitant]
     Dosage: 500 MG, UNK
  10. PREVACID [Concomitant]
     Dosage: UNK UNK, BID
  11. SEASONIQUE [Concomitant]
  12. YAZ [Suspect]
     Indication: PREMENSTRUAL SYNDROME
  13. ZELNORM [Concomitant]

REACTIONS (4)
  - CHOLECYSTITIS CHRONIC [None]
  - GALLBLADDER DISORDER [None]
  - ABDOMINAL PAIN UPPER [None]
  - PROCEDURAL PAIN [None]
